FAERS Safety Report 8003131-2 (Version None)
Quarter: 2011Q4

REPORT INFORMATION
  Report Type: 
  Country: None (occurrence: None)
  Receive Date: 20111222
  Receipt Date: 20111212
  Transmission Date: 20120403
  Serious: Yes (Other)
  Sender: FDA-Public Use
  Company Number: PHEH2011US011635

PATIENT
  Sex: Female

DRUGS (1)
  1. TASIGNA [Suspect]
     Indication: CHRONIC MYELOID LEUKAEMIA
     Dosage: 300 MG, BID

REACTIONS (5)
  - CONFUSIONAL STATE [None]
  - NEUROTOXICITY [None]
  - RENAL FAILURE ACUTE [None]
  - BLOOD CREATININE INCREASED [None]
  - NEPHROPATHY TOXIC [None]
